FAERS Safety Report 9798469 (Version 1)
Quarter: 2013Q4

REPORT INFORMATION
  Report Type: Spontaneous
  Country: AU (occurrence: None)
  Receive Date: 20131230
  Receipt Date: 20131230
  Transmission Date: 20140711
  Serious: Yes (Other)
  Sender: FDA-Public Use
  Company Number: 2013000384

PATIENT
  Age: 77 Year
  Sex: Female

DRUGS (12)
  1. ACEON (PERINDOPRIL ERBUMINE) TABLET [Suspect]
     Indication: PRODUCT USED FOR UNKNOWN INDICATION
  2. DIGOXIN (DIGOXIN) [Suspect]
     Indication: PRODUCT USED FOR UNKNOWN INDICATION
  3. FUROSEMIDE (FUROSEMIDE) [Suspect]
     Indication: PRODUCT USED FOR UNKNOWN INDICATION
  4. SIMVASTATIN (SIMVASTATIN) [Suspect]
     Indication: PRODUCT USED FOR UNKNOWN INDICATION
  5. FUROSEMIDE (FUROSEMIDE) [Suspect]
     Indication: PRODUCT USED FOR UNKNOWN INDICATION
  6. SIMVASTATIN (SIMVASTATIN) [Concomitant]
     Indication: PRODUCT USED FOR UNKNOWN INDICATION
  7. SPIRONOLACTONE (SPIRONOLACTONE) [Suspect]
     Indication: PRODUCT USED FOR UNKNOWN INDICATION
  8. WARFARIN SODIUM (WARFARIN SODIUM) [Suspect]
     Indication: PRODUCT USED FOR UNKNOWN INDICATION
  9. AMIODARONE HYDROCHLORIDE [Concomitant]
  10. ASPIRIN [Concomitant]
  11. OMEGA-3 MARINE TRIGLYCERIDES [Concomitant]
  12. POTASSIUM CHLORIDE [Concomitant]

REACTIONS (3)
  - Cardiac failure congestive [None]
  - Rhabdomyolysis [None]
  - Renal failure acute [None]
